FAERS Safety Report 10348807 (Version 1)
Quarter: 2014Q3

REPORT INFORMATION
  Report Type: Spontaneous
  Country: GB (occurrence: GB)
  Receive Date: 20140729
  Receipt Date: 20140729
  Transmission Date: 20150326
  Serious: Yes (Hospitalization)
  Sender: FDA-Public Use
  Company Number: ALCN2014GB004242

PATIENT
  Sex: Female

DRUGS (1)
  1. SYSTANE [Suspect]
     Active Substance: HYPROMELLOSE 2910 (4000 MPA.S)
     Dosage: UNK

REACTIONS (2)
  - Eye infection [Recovered/Resolved]
  - Adverse reaction [Recovered/Resolved]

NARRATIVE: CASE EVENT DATE: 2014
